FAERS Safety Report 14079957 (Version 1)
Quarter: 2017Q4

REPORT INFORMATION
  Report Type: Spontaneous
  Country: JP (occurrence: JP)
  Receive Date: 20171012
  Receipt Date: 20171012
  Transmission Date: 20180321
  Serious: Yes (Other)
  Sender: FDA-Public Use
  Company Number: JP-PFIZER INC-2017432855

PATIENT
  Age: 28 Year
  Sex: Female

DRUGS (1)
  1. WYPAX 1.0 [Suspect]
     Active Substance: LORAZEPAM
     Dosage: 20 DF, SINGLE
     Route: 048

REACTIONS (3)
  - Intentional overdose [Unknown]
  - Malaise [Unknown]
  - Suicide attempt [Unknown]
